FAERS Safety Report 25680736 (Version 1)
Quarter: 2025Q3

REPORT INFORMATION
  Report Type: Spontaneous
  Country: US (occurrence: US)
  Receive Date: 20250814
  Receipt Date: 20250814
  Transmission Date: 20251020
  Serious: Yes (Other)
  Sender: MYLAN
  Company Number: US-MYLANLABS-2025M1068494

PATIENT
  Sex: Female

DRUGS (28)
  1. DOXYCYCLINE HYCLATE [Suspect]
     Active Substance: DOXYCYCLINE HYCLATE
     Indication: Acne cystic
  2. DOXYCYCLINE HYCLATE [Suspect]
     Active Substance: DOXYCYCLINE HYCLATE
     Route: 048
  3. DOXYCYCLINE HYCLATE [Suspect]
     Active Substance: DOXYCYCLINE HYCLATE
     Route: 048
  4. DOXYCYCLINE HYCLATE [Suspect]
     Active Substance: DOXYCYCLINE HYCLATE
  5. TRETINOIN [Suspect]
     Active Substance: TRETINOIN
     Indication: Acne cystic
  6. TRETINOIN [Suspect]
     Active Substance: TRETINOIN
     Route: 065
  7. TRETINOIN [Suspect]
     Active Substance: TRETINOIN
     Route: 065
  8. TRETINOIN [Suspect]
     Active Substance: TRETINOIN
  9. SULFAMETHOXAZOLE\TRIMETHOPRIM [Suspect]
     Active Substance: SULFAMETHOXAZOLE\TRIMETHOPRIM
     Indication: Acne cystic
  10. SULFAMETHOXAZOLE\TRIMETHOPRIM [Suspect]
     Active Substance: SULFAMETHOXAZOLE\TRIMETHOPRIM
     Route: 065
  11. SULFAMETHOXAZOLE\TRIMETHOPRIM [Suspect]
     Active Substance: SULFAMETHOXAZOLE\TRIMETHOPRIM
     Route: 065
  12. SULFAMETHOXAZOLE\TRIMETHOPRIM [Suspect]
     Active Substance: SULFAMETHOXAZOLE\TRIMETHOPRIM
  13. CLINDAMYCIN [Suspect]
     Active Substance: CLINDAMYCIN
     Indication: Acne cystic
  14. CLINDAMYCIN [Suspect]
     Active Substance: CLINDAMYCIN
     Route: 061
  15. CLINDAMYCIN [Suspect]
     Active Substance: CLINDAMYCIN
     Route: 061
  16. CLINDAMYCIN [Suspect]
     Active Substance: CLINDAMYCIN
  17. NORETHINDRONE [Concomitant]
     Active Substance: NORETHINDRONE
     Indication: Polycystic ovarian syndrome
  18. NORETHINDRONE [Concomitant]
     Active Substance: NORETHINDRONE
     Route: 065
  19. NORETHINDRONE [Concomitant]
     Active Substance: NORETHINDRONE
     Route: 065
  20. NORETHINDRONE [Concomitant]
     Active Substance: NORETHINDRONE
  21. ETHINYL ESTRADIOL [Concomitant]
     Active Substance: ETHINYL ESTRADIOL
     Indication: Polycystic ovarian syndrome
  22. ETHINYL ESTRADIOL [Concomitant]
     Active Substance: ETHINYL ESTRADIOL
     Route: 065
  23. ETHINYL ESTRADIOL [Concomitant]
     Active Substance: ETHINYL ESTRADIOL
     Route: 065
  24. ETHINYL ESTRADIOL [Concomitant]
     Active Substance: ETHINYL ESTRADIOL
  25. FERROUS FUMARATE [Concomitant]
     Active Substance: FERROUS FUMARATE
     Indication: Polycystic ovarian syndrome
  26. FERROUS FUMARATE [Concomitant]
     Active Substance: FERROUS FUMARATE
     Route: 065
  27. FERROUS FUMARATE [Concomitant]
     Active Substance: FERROUS FUMARATE
     Route: 065
  28. FERROUS FUMARATE [Concomitant]
     Active Substance: FERROUS FUMARATE

REACTIONS (1)
  - Drug ineffective [Unknown]
